FAERS Safety Report 4677152-1 (Version None)
Quarter: 2005Q2

REPORT INFORMATION
  Report Type: 
  Country: None (occurrence: None)
  Receive Date: 20050526
  Receipt Date: 20050511
  Transmission Date: 20051028
  Serious: Yes (Hospitalization)
  Sender: FDA-Public Use
  Company Number: DSA_26449_2005

PATIENT
  Age: 91 Year
  Sex: Female

DRUGS (8)
  1. CARDIZEM CD [Suspect]
     Indication: MYOCARDIAL ISCHAEMIA
     Dosage: 180 MG Q DAY PO
     Route: 048
     Dates: start: 20041005
  2. COVERSYL [Suspect]
     Indication: MYOCARDIAL ISCHAEMIA
     Dosage: 2 MG Q DAY PO
     Route: 048
     Dates: start: 20041008, end: 20041026
  3. CALTRATE [Suspect]
     Indication: OSTEOPOROSIS
     Dosage: 600 MG Q DAY PO
     Route: 048
     Dates: start: 20041008
  4. SOMAC [Suspect]
     Indication: DUODENITIS
     Dosage: 80 MG Q DAY
     Dates: start: 20041008, end: 20041018
  5. SOMAC [Suspect]
     Indication: GASTRITIS
     Dosage: 80 MG Q DAY
     Dates: start: 20041008, end: 20041018
  6. SERETIDE [Concomitant]
  7. ANGININE [Concomitant]
  8. TYLENOL (CAPLET) [Concomitant]

REACTIONS (3)
  - HYPERVENTILATION [None]
  - RASH [None]
  - WHEEZING [None]
